FAERS Safety Report 14454008 (Version 1)
Quarter: 2018Q1

REPORT INFORMATION
  Report Type: Spontaneous
  Country: US (occurrence: US)
  Receive Date: 20180129
  Receipt Date: 20180129
  Transmission Date: 20180509
  Serious: No
  Sender: FDA-Public Use
  Company Number: US-ALLERGAN-1714076US

PATIENT
  Sex: Female

DRUGS (4)
  1. CEPHALEXIN. [Concomitant]
     Active Substance: CEPHALEXIN
     Indication: SKIN LESION
     Route: 065
  2. CORTISONE [Concomitant]
     Active Substance: CORTISONE\HYDROCORTISONE
     Indication: SKIN LESION
     Dosage: UNK UNK, SINGLE
     Route: 030
  3. TAZORAC [Suspect]
     Active Substance: TAZAROTENE
     Indication: SKIN LESION
     Dosage: UNK
     Route: 061
     Dates: start: 2016, end: 201606
  4. CORTISONE [Concomitant]
     Active Substance: CORTISONE\HYDROCORTISONE
     Indication: SKIN LESION
     Route: 061

REACTIONS (3)
  - Skin lesion [Not Recovered/Not Resolved]
  - Drug dose omission [Unknown]
  - Off label use [Unknown]
